FAERS Safety Report 7878501-3 (Version None)
Quarter: 2011Q4

REPORT INFORMATION
  Report Type: 
  Country: None (occurrence: None)
  Receive Date: 20111028
  Receipt Date: 20111014
  Transmission Date: 20120403
  Serious: Yes (Hospitalization)
  Sender: FDA-Public Use
  Company Number: VAL_00632_2011

PATIENT
  Sex: Male

DRUGS (13)
  1. NOROXIN [Concomitant]
  2. CATAPRESAN /00171102/ [Concomitant]
  3. LASIX /0032601/ [Concomitant]
  4. ROCALTROL [Suspect]
     Indication: HYPOCALCAEMIA
     Dosage: (0.5 UG QD ORAL)
     Route: 048
     Dates: start: 20090101, end: 20110615
  5. MIRCERA [Concomitant]
  6. ALLOPURINOL [Concomitant]
  7. KANRENOL [Concomitant]
  8. CELLCEPT [Concomitant]
  9. CALCIUM GLUCONATE [Suspect]
     Indication: HYPOCALCAEMIA
     Dosage: (500 MG BID ORAL)
     Route: 048
     Dates: start: 20090101, end: 20110615
  10. MAG 2 /00799801/ [Concomitant]
  11. NEORAL [Concomitant]
  12. LAEVOLAC [Concomitant]
  13. OMEPRAZOLE [Suspect]
     Indication: PROPHYLAXIS AGAINST GASTROINTESTINAL ULCER
     Dosage: (10 MG QD ORAL), (10 MG QD ORAL)
     Route: 048
     Dates: start: 20090101, end: 20110615

REACTIONS (4)
  - BLOOD SODIUM DECREASED [None]
  - COMPLICATIONS OF TRANSPLANTED LIVER [None]
  - HYPERCALCAEMIA [None]
  - HEPATIC NEOPLASM MALIGNANT RECURRENT [None]
